FAERS Safety Report 10876587 (Version 1)
Quarter: 2015Q1

REPORT INFORMATION
  Report Type: Spontaneous
  Country: PL (occurrence: PL)
  Receive Date: 20150301
  Receipt Date: 20150301
  Transmission Date: 20150721
  Serious: Yes (Death, Other)
  Sender: FDA-Public Use
  Company Number: PHHY2015PL022661

PATIENT
  Sex: Male

DRUGS (5)
  1. IMATINIB [Suspect]
     Active Substance: IMATINIB
     Indication: CHRONIC MYELOID LEUKAEMIA
     Route: 065
     Dates: start: 201004
  2. INTERFERON [Suspect]
     Active Substance: INTERFERON
     Indication: METASTASES TO LUNG
     Route: 065
  3. SUNITINIB [Suspect]
     Active Substance: SUNITINIB
     Dosage: 37.5 MG, UNK
     Route: 065
     Dates: start: 201006
  4. HYDROXYCARBAMIDE [Suspect]
     Active Substance: HYDROXYUREA
     Indication: CHRONIC MYELOID LEUKAEMIA
     Dosage: 3 G, QD
     Route: 065
  5. SUNITINIB [Suspect]
     Active Substance: SUNITINIB
     Indication: CLEAR CELL RENAL CELL CARCINOMA
     Dosage: 50 MG, 4/2
     Route: 065

REACTIONS (4)
  - Malignant neoplasm progression [Fatal]
  - Multi-organ failure [Fatal]
  - Chronic myeloid leukaemia [Fatal]
  - Acute myocardial infarction [Unknown]
